FAERS Safety Report 9553351 (Version 1)
Quarter: 2013Q3

REPORT INFORMATION
  Report Type: Spontaneous
  Country: US (occurrence: US)
  Receive Date: 20130925
  Receipt Date: 20130925
  Transmission Date: 20140515
  Serious: No
  Sender: FDA-Public Use
  Company Number: US-PFIZER INC-2013274667

PATIENT
  Sex: Female

DRUGS (1)
  1. ADVIL ALLERGY AND CONGESTION RELIEF [Suspect]
     Indication: PYREXIA
     Dosage: UNK
     Dates: start: 20130922

REACTIONS (3)
  - Somnolence [Unknown]
  - Nervousness [Unknown]
  - Burning sensation [Unknown]
